FAERS Safety Report 24276346 (Version 6)
Quarter: 2025Q3

REPORT INFORMATION
  Report Type: Report from Study
  Country: JP (occurrence: JP)
  Receive Date: 20240903
  Receipt Date: 20250714
  Transmission Date: 20251021
  Serious: Yes (Life-Threatening, Other)
  Sender: JOHNSON AND JOHNSON
  Company Number: JP-JNJFOC-20240846371

PATIENT
  Age: 56 Year
  Sex: Female

DRUGS (8)
  1. CONCERTA [Suspect]
     Active Substance: METHYLPHENIDATE HYDROCHLORIDE
     Indication: Attention deficit hyperactivity disorder
     Route: 048
  2. CONCERTA [Suspect]
     Active Substance: METHYLPHENIDATE HYDROCHLORIDE
     Route: 048
  3. CONCERTA [Suspect]
     Active Substance: METHYLPHENIDATE HYDROCHLORIDE
     Route: 048
     Dates: start: 2024
  4. CONCERTA [Suspect]
     Active Substance: METHYLPHENIDATE HYDROCHLORIDE
     Route: 048
  5. CYMBALTA [Concomitant]
     Active Substance: DULOXETINE HYDROCHLORIDE
     Indication: Neuropathy peripheral
     Route: 048
  6. CYMBALTA [Concomitant]
     Active Substance: DULOXETINE HYDROCHLORIDE
     Route: 048
  7. STRATTERA [Concomitant]
     Active Substance: ATOMOXETINE HYDROCHLORIDE
     Indication: Attention deficit hyperactivity disorder
     Route: 065
  8. INTUNIV [Concomitant]
     Active Substance: GUANFACINE HYDROCHLORIDE
     Indication: Attention deficit hyperactivity disorder
     Route: 065

REACTIONS (20)
  - Dehydration [Unknown]
  - Arrhythmia [Unknown]
  - Suicidal ideation [Unknown]
  - Compression fracture [Unknown]
  - Hypersomnia [Not Recovered/Not Resolved]
  - Chest pain [Unknown]
  - Nausea [Unknown]
  - Pseudolymphoma [Unknown]
  - Irritable bowel syndrome [Unknown]
  - Vomiting [Unknown]
  - Drug tolerance [Unknown]
  - Muscle rigidity [Unknown]
  - Hot flush [Unknown]
  - Feeling abnormal [Unknown]
  - Decreased appetite [Unknown]
  - Back pain [Unknown]
  - Weight decreased [Unknown]
  - Bone density abnormal [Unknown]
  - Blood pressure systolic decreased [Unknown]
  - Treatment noncompliance [Unknown]
